FAERS Safety Report 5666627-4 (Version None)
Quarter: 2008Q1

REPORT INFORMATION
  Report Type: 
  Country: None (occurrence: None)
  Receive Date: 20080315
  Receipt Date: 20071217
  Transmission Date: 20080703
  Serious: No
  Sender: FDA-Public Use
  Company Number: US-ABBOTT-07P-163-0431210-00

PATIENT
  Sex: Female
  Weight: 56.296 kg

DRUGS (7)
  1. HUMIRA [Suspect]
     Indication: CROHN'S DISEASE
     Route: 058
     Dates: start: 20071203
  2. AZATHIOPRINE [Concomitant]
     Indication: DRUG USE FOR UNKNOWN INDICATION
  3. LEVETIRACETAM [Concomitant]
     Indication: CONVULSION
  4. LAMOTRIGINE [Concomitant]
     Indication: CONVULSION
  5. SERTRALINE [Concomitant]
     Indication: DRUG USE FOR UNKNOWN INDICATION
  6. ZOLPIDEM TARTRATE [Concomitant]
     Indication: DRUG USE FOR UNKNOWN INDICATION
  7. CYANOCOBALAMIN [Concomitant]
     Indication: DRUG USE FOR UNKNOWN INDICATION

REACTIONS (2)
  - INCREASED VISCOSITY OF BRONCHIAL SECRETION [None]
  - PHARYNGOLARYNGEAL PAIN [None]
